FAERS Safety Report 24360501 (Version 7)
Quarter: 2025Q3

REPORT INFORMATION
  Report Type: Spontaneous
  Country: US (occurrence: US)
  Receive Date: 20240925
  Receipt Date: 20250721
  Transmission Date: 20251021
  Serious: Yes (Hospitalization, Other)
  Sender: AMGEN
  Company Number: US-AMGEN-USASP2024188257

PATIENT
  Age: 40 Year
  Sex: Female
  Weight: 54.8 kg

DRUGS (8)
  1. PROCRIT [Suspect]
     Active Substance: ERYTHROPOIETIN
     Indication: Nephrogenic anaemia
     Dosage: UNK UNK, QWK (3000.00 UNITS/ML)
     Route: 058
     Dates: start: 201802
  2. PROCRIT [Suspect]
     Active Substance: ERYTHROPOIETIN
     Dosage: UNK UNK, QWK (10,000 TO 30,000 UNIT) (3000.00 UNITS/ML)
     Route: 058
     Dates: start: 20231006
  3. PROCRIT [Suspect]
     Active Substance: ERYTHROPOIETIN
     Dosage: UNK, QWK (10,000 TO 30,000 UNIT) (3000.00 UNITS/ML)
     Route: 058
  4. PROCRIT [Suspect]
     Active Substance: ERYTHROPOIETIN
     Dosage: UNK, QWK (10,000 TO 30,000 UNIT) (3000.00 UNITS/ML)
     Route: 058
  5. PROCRIT [Suspect]
     Active Substance: ERYTHROPOIETIN
     Dosage: 30000 UNIT, QWK
     Route: 058
     Dates: start: 202401
  6. PROCRIT [Suspect]
     Active Substance: ERYTHROPOIETIN
     Dosage: UNK, QWK (10,000 TO 30,000 UNIT) (3000.00 UNITS/ML)
     Route: 058
     Dates: start: 20240627, end: 20240627
  7. ARANESP [Suspect]
     Active Substance: DARBEPOETIN ALFA
     Indication: Nephrogenic anaemia
     Route: 065
     Dates: start: 202407
  8. MIRCERA [Concomitant]
     Active Substance: METHOXY POLYETHYLENE GLYCOL-EPOETIN BETA
     Indication: Nephrogenic anaemia
     Dates: start: 20241126

REACTIONS (7)
  - Anaemia [Not Recovered/Not Resolved]
  - Aplasia pure red cell [Unknown]
  - Reticulocyte count decreased [Unknown]
  - Lethargy [Unknown]
  - Therapeutic product effect incomplete [Unknown]
  - Drug ineffective [Unknown]
  - Dizziness [Unknown]
